FAERS Safety Report 10084975 (Version 5)
Quarter: 2014Q4

REPORT INFORMATION
  Report Type: Report from Study
  Country: JP (occurrence: JP)
  Receive Date: 20140417
  Receipt Date: 20141218
  Transmission Date: 20150528
  Serious: Yes (Hospitalization)
  Sender: FDA-Public Use
  Company Number: JP-ROCHE-1377397

PATIENT
  Age: 66 Year
  Sex: Male
  Weight: 68 kg

DRUGS (30)
  1. KENALOG (JAPAN) [Concomitant]
     Indication: STOMATITIS
     Route: 065
     Dates: start: 20140304, end: 20140407
  2. OLMETEC [Concomitant]
     Active Substance: OLMESARTAN MEDOXOMIL
     Indication: HYPERTENSION
     Route: 048
     Dates: start: 20140315, end: 20140325
  3. HYALEIN [Concomitant]
     Active Substance: HYALURONATE SODIUM
     Indication: DRY EYE
     Route: 047
     Dates: start: 199301
  4. DECADRON [Concomitant]
     Active Substance: DEXAMETHASONE
     Indication: NAUSEA
     Route: 042
     Dates: start: 20140124, end: 20140418
  5. PERTUZUMAB [Suspect]
     Active Substance: PERTUZUMAB
     Dosage: MOST RECENT DOSE PRIOR TO AE ON : 14/MAR/2014
     Route: 042
  6. CAPECITABINE. [Suspect]
     Active Substance: CAPECITABINE
     Dosage: DOSE REDUCED (75 %)
     Route: 048
     Dates: start: 20140418
  7. MANNITOL 20% [Concomitant]
     Dosage: FOR HYDRATION
     Route: 042
     Dates: start: 20140124, end: 20140418
  8. OLMETEC [Concomitant]
     Active Substance: OLMESARTAN MEDOXOMIL
     Indication: HYPERTENSION
     Dosage: SELECT IF ONGOING=NO
     Route: 065
     Dates: start: 20140326, end: 20140331
  9. HACHIAZULE [Concomitant]
     Indication: STOMATITIS
     Route: 050
     Dates: start: 20140401
  10. CAPECITABINE. [Suspect]
     Active Substance: CAPECITABINE
     Indication: HER-2 POSITIVE GASTRIC CANCER
     Dosage: MOST RECENT DOSE PRIOR TO AE : 28/MAR/2014
     Route: 048
     Dates: start: 20140124
  11. CISPLATIN. [Suspect]
     Active Substance: CISPLATIN
     Indication: HER-2 POSITIVE GASTRIC CANCER
     Dosage: LAST DOSE PRIOR TO EVENT: 14/MAR/2014
     Route: 042
     Dates: start: 20140124
  12. DECADRON [Concomitant]
     Active Substance: DEXAMETHASONE
     Indication: NAUSEA
     Route: 042
     Dates: start: 20140125, end: 20140420
  13. BIO-THREE [Concomitant]
     Active Substance: HERBALS
     Indication: DIARRHOEA
     Route: 048
     Dates: start: 20140329, end: 20140329
  14. CALONAL [Concomitant]
     Active Substance: ACETAMINOPHEN
     Indication: PYREXIA
     Route: 048
     Dates: start: 20140406, end: 20140406
  15. PROEMEND [Concomitant]
     Active Substance: FOSAPREPITANT
     Indication: NAUSEA
     Route: 042
     Dates: start: 20140124, end: 20140418
  16. KERATINAMIN [Concomitant]
     Active Substance: UREA
     Indication: PALMAR-PLANTAR ERYTHRODYSAESTHESIA SYNDROME
  17. ENSURE [Concomitant]
     Active Substance: AMINO ACIDS\DEXTROSE\ELECTROLYTES NOS\SOYBEAN OIL\VITAMINS
     Indication: DECREASED APPETITE
     Route: 048
     Dates: start: 20140401, end: 20140402
  18. PERTUZUMAB [Suspect]
     Active Substance: PERTUZUMAB
     Indication: HER-2 POSITIVE GASTRIC CANCER
     Dosage: LOADING DOSE
     Route: 042
     Dates: start: 20140124
  19. TRASTUZUMAB [Suspect]
     Active Substance: TRASTUZUMAB
     Dosage: MAINTENANCE DOSE?MOST RECENT DOSE PRIOR TO AE ON : 14/MAR/2014
     Route: 042
  20. TRASTUZUMAB [Suspect]
     Active Substance: TRASTUZUMAB
     Route: 042
     Dates: start: 20140418
  21. KERATINAMIN [Concomitant]
     Active Substance: UREA
     Indication: DRY SKIN
     Route: 065
     Dates: start: 20140127
  22. CRAVIT [Concomitant]
     Active Substance: LEVOFLOXACIN
     Indication: CONJUNCTIVITIS
     Route: 047
     Dates: start: 20140404, end: 20140409
  23. LASIX [Concomitant]
     Active Substance: FUROSEMIDE
     Indication: OEDEMA
     Route: 042
     Dates: start: 20140315, end: 20140317
  24. TRASTUZUMAB [Suspect]
     Active Substance: TRASTUZUMAB
     Indication: HER-2 POSITIVE GASTRIC CANCER
     Dosage: LOADING DOSE
     Route: 042
     Dates: start: 20140124, end: 20140124
  25. CISPLATIN. [Suspect]
     Active Substance: CISPLATIN
     Dosage: DOSE NOT CHANGED
     Route: 042
     Dates: start: 20140418
  26. PARIET [Concomitant]
     Active Substance: RABEPRAZOLE SODIUM
     Indication: GASTROOESOPHAGEAL REFLUX DISEASE
     Route: 048
     Dates: start: 20131225
  27. ALOXI [Concomitant]
     Active Substance: PALONOSETRON HYDROCHLORIDE
     Indication: NAUSEA
     Route: 042
     Dates: start: 20140124, end: 20140418
  28. DEXALTIN [Concomitant]
     Active Substance: DEXAMETHASONE
     Indication: STOMATITIS
     Route: 061
     Dates: start: 20140407, end: 20140428
  29. HACHIAZULE [Concomitant]
     Indication: DYSGEUSIA
  30. XYLOCAINE [Concomitant]
     Active Substance: LIDOCAINE HYDROCHLORIDE
     Indication: STOMATITIS
     Route: 065
     Dates: start: 20140401, end: 20140416

REACTIONS (1)
  - Dehydration [Recovered/Resolved]

NARRATIVE: CASE EVENT DATE: 20140403
